FAERS Safety Report 9777956 (Version 1)
Quarter: 2013Q4

REPORT INFORMATION
  Report Type: Spontaneous
  Country: BR (occurrence: BR)
  Receive Date: 20131223
  Receipt Date: 20131223
  Transmission Date: 20140711
  Serious: Yes (Hospitalization)
  Sender: FDA-Public Use
  Company Number: BR-ASTRAZENECA-2013SE91715

PATIENT
  Age: 60 Year
  Sex: Male
  Weight: 100 kg

DRUGS (6)
  1. ATENOL [Suspect]
     Indication: BLOOD PRESSURE ABNORMAL
     Route: 048
     Dates: start: 2009
  2. ATACAND [Suspect]
     Indication: BLOOD PRESSURE ABNORMAL
     Dosage: 1/2 DF, TWO TIMES A DAY
     Route: 048
     Dates: start: 2009
  3. PREDNISONE [Concomitant]
     Route: 048
  4. PROGRAF [Concomitant]
     Indication: RENAL TRANSPLANT
     Route: 048
  5. ASPIRINA PREVENT [Concomitant]
     Route: 048
  6. AZATHIOPRINE [Concomitant]
     Dosage: DAILY
     Route: 048

REACTIONS (2)
  - Arteriosclerosis coronary artery [Recovered/Resolved]
  - Off label use [Not Recovered/Not Resolved]
